FAERS Safety Report 19630641 (Version 1)
Quarter: 2021Q3

REPORT INFORMATION
  Report Type: Spontaneous
  Country: CA (occurrence: CA)
  Receive Date: 20210728
  Receipt Date: 20210728
  Transmission Date: 20211014
  Serious: Yes (Hospitalization, Other)
  Sender: FDA-Public Use
  Company Number: CA-FRESENIUS KABI-FK202107798

PATIENT
  Age: 69 Year
  Sex: Female

DRUGS (4)
  1. CYTARABINE. [Suspect]
     Active Substance: CYTARABINE
     Indication: MYELOPROLIFERATIVE NEOPLASM
     Dosage: FLAG?IDA INDUCTION REGIMEN
     Route: 065
  2. IDARUBICIN HYDROCHLORIDE (MANUFACTURER UNKNOWN) [Suspect]
     Active Substance: IDARUBICIN HYDROCHLORIDE
     Indication: MYELOPROLIFERATIVE NEOPLASM
     Dosage: FLAG?IDA INDUCTION REGIMEN
     Route: 065
  3. FILGRASTIM [Suspect]
     Active Substance: FILGRASTIM
     Indication: MYELOPROLIFERATIVE NEOPLASM
     Dosage: FLAG?IDA INDUCTION REGIMEN
     Route: 065
  4. FLUDARABINE [Suspect]
     Active Substance: FLUDARABINE PHOSPHATE
     Indication: MYELOPROLIFERATIVE NEOPLASM
     Dosage: FLAG?IDA INDUCTION REGIMEN
     Route: 065

REACTIONS (2)
  - Pneumonia [Unknown]
  - Febrile neutropenia [Unknown]
